FAERS Safety Report 8079956-4 (Version None)
Quarter: 2012Q1

REPORT INFORMATION
  Report Type: 
  Country: None (occurrence: None)
  Receive Date: 20120128
  Receipt Date: 20110802
  Transmission Date: 20120608
  Serious: No
  Sender: FDA-Public Use
  Company Number: US-ABBOTT-11P-163-0843557-00

PATIENT
  Age: 36 Year
  Sex: Male

DRUGS (2)
  1. SULFASALAZINE [Concomitant]
     Indication: PRODUCT USED FOR UNKNOWN INDICATION
  2. HUMIRA [Suspect]
     Indication: CROHN'S DISEASE
     Dates: start: 20110706

REACTIONS (4)
  - AGGRESSION [None]
  - MENTAL STATUS CHANGES [None]
  - MENTAL IMPAIRMENT [None]
  - DEPRESSION [None]
